FAERS Safety Report 23903235 (Version 2)
Quarter: 2024Q4

REPORT INFORMATION
  Report Type: Report from Study
  Country: CA (occurrence: CA)
  Receive Date: 20240527
  Receipt Date: 20241011
  Transmission Date: 20250115
  Serious: Yes (Other)
  Sender: BIOCON
  Company Number: CA-BIOCON BIOLOGICS LIMITED-BBL2024001707

PATIENT

DRUGS (3)
  1. HULIO [Suspect]
     Active Substance: ADALIMUMAB-FKJP
     Indication: Rheumatoid arthritis
     Dosage: 40 MILLIGRAM, Q2W
     Route: 058
     Dates: start: 20231011
  2. HULIO [Suspect]
     Active Substance: ADALIMUMAB-FKJP
     Dosage: UNK, BIWEEKLY
     Route: 058
     Dates: start: 20231025
  3. HULIO [Suspect]
     Active Substance: ADALIMUMAB-FKJP
     Dosage: 40 MG, Q2W (EVERY OTHER WEEK OR BIWEEKLY)
     Route: 058

REACTIONS (3)
  - Pulmonary congestion [Not Recovered/Not Resolved]
  - Influenza [Recovering/Resolving]
  - Cough [Not Recovered/Not Resolved]
